FAERS Safety Report 21630878 (Version 1)
Quarter: 2022Q4

REPORT INFORMATION
  Report Type: Other
  Country: PA (occurrence: PA)
  Receive Date: 20221123
  Receipt Date: 20221123
  Transmission Date: 20230113
  Serious: Yes (Death)
  Sender: FDA-Public Use
  Company Number: PA-TOLMAR, INC.-22PA037533

PATIENT
  Sex: Male

DRUGS (2)
  1. ELIGARD [Suspect]
     Active Substance: LEUPROLIDE ACETATE
     Indication: Prostate cancer
     Dosage: 45 MILLIGRAM, Q 6 MONTH
     Route: 058
  2. ELIGARD [Suspect]
     Active Substance: LEUPROLIDE ACETATE
     Dosage: 45 MILLIGRAM, Q 6 MONTH
     Route: 058
     Dates: start: 202204, end: 202208

REACTIONS (2)
  - General physical health deterioration [Fatal]
  - Prostate cancer [Fatal]
